FAERS Safety Report 10271751 (Version 1)
Quarter: 2014Q3

REPORT INFORMATION
  Report Type: Spontaneous
  Country: US (occurrence: US)
  Receive Date: 20140701
  Receipt Date: 20140701
  Transmission Date: 20150326
  Serious: No
  Sender: FDA-Public Use
  Company Number: -SAAVPROD-CERZ-1002873

PATIENT
  Age: 31 Year
  Sex: Female
  Weight: 55.6 kg

DRUGS (1)
  1. IMIGLUCERASE [Suspect]
     Active Substance: IMIGLUCERASE
     Indication: GAUCHER^S DISEASE
     Dosage: 3600 UNITS (65 U/KG), Q2W DOSE:65 UNIT(S)/KILOGRAM BODYWEIGHT
     Route: 042
     Dates: start: 201205, end: 20130325

REACTIONS (1)
  - Exposure during pregnancy [Unknown]
